FAERS Safety Report 9705951 (Version 3)
Quarter: 2013Q4

REPORT INFORMATION
  Report Type: Spontaneous
  Country: US (occurrence: US)
  Receive Date: 20131122
  Receipt Date: 20131202
  Transmission Date: 20140711
  Serious: No
  Sender: FDA-Public Use
  Company Number: US-GILEAD-2013-0084476

PATIENT
  Age: 66 Year
  Sex: Female

DRUGS (5)
  1. LETAIRIS [Suspect]
     Indication: PRODUCT USED FOR UNKNOWN INDICATION
     Dosage: 10 MG, UNK
     Route: 048
     Dates: start: 20100714, end: 20131023
  2. LETAIRIS [Suspect]
     Dosage: 5 MG, UNK
     Route: 048
     Dates: start: 20070827
  3. LETAIRIS [Suspect]
     Dosage: 10 MG, UNK
     Route: 048
     Dates: start: 20131114
  4. TYVASO [Concomitant]
  5. ADCIRCA [Concomitant]

REACTIONS (2)
  - Alanine aminotransferase increased [Unknown]
  - Aspartate aminotransferase increased [Unknown]
